FAERS Safety Report 9624737 (Version 2)
Quarter: 2013Q4

REPORT INFORMATION
  Report Type: Spontaneous
  Country: FR (occurrence: FR)
  Receive Date: 20131015
  Receipt Date: 20131015
  Transmission Date: 20140711
  Serious: Yes (Hospitalization)
  Sender: FDA-Public Use
  Company Number: FR-PFIZER INC-2008073820

PATIENT
  Age: 53 Year
  Sex: Female

DRUGS (7)
  1. SULFASALAZINE [Suspect]
     Indication: RHEUMATOID ARTHRITIS
     Dosage: UNK
     Route: 048
     Dates: start: 1995, end: 1996
  2. SULFASALAZINE [Suspect]
     Dosage: UNK
     Route: 048
     Dates: start: 2003, end: 2004
  3. ENBREL [Suspect]
     Route: 058
     Dates: start: 200612
  4. NOVATREX [Suspect]
     Dosage: UNK TABLET
     Route: 048
     Dates: start: 2004, end: 2004
  5. NOVATREX [Suspect]
     Dosage: UNK TABLET
     Route: 048
     Dates: start: 2006
  6. LEFLUNOMIDE [Suspect]
     Indication: RHEUMATOID ARTHRITIS
     Route: 048
     Dates: start: 2004, end: 2007
  7. ADALIMUMAB [Suspect]
     Indication: RHEUMATOID ARTHRITIS
     Dosage: UNK
     Dates: start: 2006, end: 200612

REACTIONS (1)
  - Breast cancer metastatic [Not Recovered/Not Resolved]
